FAERS Safety Report 11151404 (Version 2)
Quarter: 2015Q3

REPORT INFORMATION
  Report Type: Spontaneous
  Country: JP (occurrence: None)
  Receive Date: 20150528
  Receipt Date: 20150708
  Transmission Date: 20151125
  Serious: No
  Sender: FDA-Public Use
  Company Number: 2015-001081

PATIENT
  Age: 76 Year
  Sex: Female

DRUGS (7)
  1. ACTONEL [Suspect]
     Active Substance: RISEDRONATE SODIUM
     Indication: OSTEOPOROSIS
     Dates: start: 20140320, end: 20140916
  2. CANDESARTAN CILEXETIL (CANDESARTAN CILEXETIL) [Concomitant]
     Active Substance: CANDESARTAN CILEXETIL
  3. HALCION (TRIAZOLAM) [Concomitant]
  4. LYRICA [Concomitant]
     Active Substance: PREGABALIN
  5. GASTER D (FAMOTIDINE) [Concomitant]
  6. CELECOX (CELECOXIB) [Concomitant]
     Active Substance: CELECOXIB
  7. AMLODIPINE BESILATE (AMLODIPINE BESILATE) [Concomitant]
     Active Substance: AMLODIPINE BESYLATE

REACTIONS (2)
  - Gastrooesophageal reflux disease [None]
  - Gastritis [None]

NARRATIVE: CASE EVENT DATE: 20140916
